FAERS Safety Report 7543481-7 (Version None)
Quarter: 2011Q2

REPORT INFORMATION
  Report Type: 
  Country: None (occurrence: None)
  Receive Date: 20110613
  Receipt Date: 20110531
  Transmission Date: 20111010
  Serious: Yes (Other)
  Sender: FDA-Public Use
  Company Number: PHHY2011US46937

PATIENT
  Sex: Female

DRUGS (4)
  1. DIOVAN [Suspect]
     Indication: CARDIAC DISORDER
  2. EFFEXOR [Suspect]
  3. LYRICA [Suspect]
  4. LIPITOR [Suspect]
     Indication: BLOOD CHOLESTEROL INCREASED

REACTIONS (11)
  - TYPE 2 DIABETES MELLITUS [None]
  - BIPOLAR DISORDER [None]
  - DRY EYE [None]
  - PAIN IN EXTREMITY [None]
  - FALL [None]
  - SKIN LESION [None]
  - BLOOD CHOLESTEROL INCREASED [None]
  - EYE DISORDER [None]
  - CONTUSION [None]
  - LOCALISED INFECTION [None]
  - MUSCULOSKELETAL PAIN [None]
